FAERS Safety Report 16675960 (Version 1)
Quarter: 2019Q3

REPORT INFORMATION
  Report Type: Spontaneous
  Country: US (occurrence: US)
  Receive Date: 20190807
  Receipt Date: 20190807
  Transmission Date: 20191004
  Serious: No
  Sender: FDA-Public Use
  Company Number: US-BRISTOL-MYERS SQUIBB COMPANY-BMS-2019-077443

PATIENT
  Sex: Female

DRUGS (1)
  1. ELIQUIS [Suspect]
     Active Substance: APIXABAN
     Indication: THROMBOSIS
     Dosage: TWO PILLS IN THE MORNING AND TWO PILLS IN THE EVENING
     Route: 065

REACTIONS (7)
  - Pruritus [Recovering/Resolving]
  - Burning sensation [Unknown]
  - Tension headache [Unknown]
  - Swelling face [Unknown]
  - Peripheral swelling [Unknown]
  - Erythema [Unknown]
  - Headache [Unknown]
